FAERS Safety Report 5500235-0 (Version None)
Quarter: 2007Q4

REPORT INFORMATION
  Report Type: 
  Country: None (occurrence: None)
  Receive Date: 20071029
  Receipt Date: 20071019
  Transmission Date: 20080405
  Serious: Yes (Hospitalization)
  Sender: FDA-Public Use
  Company Number: GB-JNJFOC-20070506828

PATIENT
  Sex: Female
  Weight: 75 kg

DRUGS (18)
  1. DOXORUBICIN HCL [Suspect]
     Indication: OVARIAN CANCER
     Dosage: 3RD CYCLE
     Route: 042
  2. TRABECTEDIN (YONDELIS) [Suspect]
     Indication: OVARIAN CANCER
     Route: 042
  3. BETA BLOCKER [Concomitant]
     Indication: TACHYCARDIA
     Route: 065
  4. ASPIRIN [Concomitant]
     Indication: CAROTID ARTERY STENOSIS
     Route: 048
  5. SOTALOL HYDROCHLORIDE [Concomitant]
     Indication: TACHYCARDIA
     Route: 048
  6. DIPYRIDAMOL [Concomitant]
     Indication: CAROTID ARTERY STENOSIS
     Route: 048
  7. ATORVASTATIN CALCIUM [Concomitant]
     Indication: HYPERCHOLESTEROLAEMIA
     Route: 048
  8. DOMPERIDONE [Concomitant]
     Indication: NAUSEA
     Route: 048
  9. MOVICOL [Concomitant]
     Indication: CONSTIPATION
     Route: 048
  10. PARACETAMOL [Concomitant]
     Indication: PAIN
     Route: 048
  11. DIHYDROCODEINE BITARTRATE INJ [Concomitant]
     Indication: PAIN
     Route: 048
  12. OILATUM [Concomitant]
     Indication: PROPHYLAXIS
     Route: 061
  13. DIFFLAM [Concomitant]
     Indication: PROPHYLAXIS
     Route: 061
  14. CHLORHEXIDINE GLUCONATE [Concomitant]
     Indication: PROPHYLAXIS
     Route: 061
  15. PIRITON [Concomitant]
     Route: 048
  16. GAVISCON [Concomitant]
     Indication: DYSPEPSIA
     Dosage: 10-20ML
     Route: 048
  17. LANSOPRAZOLE [Concomitant]
     Indication: DYSPEPSIA
     Route: 048
  18. FLUCONAZOLE [Concomitant]
     Indication: PROPHYLAXIS
     Route: 048

REACTIONS (3)
  - ARTHRALGIA [None]
  - ASCITES [None]
  - MUCOSAL INFLAMMATION [None]
